FAERS Safety Report 24443677 (Version 2)
Quarter: 2024Q4

REPORT INFORMATION
  Report Type: Report from Study
  Country: US (occurrence: US)
  Receive Date: 20241016
  Receipt Date: 20241017
  Transmission Date: 20250115
  Serious: No
  Sender: ROCHE
  Company Number: US-ROCHE-1851913

PATIENT
  Age: 52 Year
  Sex: Female
  Weight: 117.93 kg

DRUGS (20)
  1. RITUXAN [Suspect]
     Active Substance: RITUXIMAB
     Indication: Multiple sclerosis
     Dosage: DATE OF TREATMENT: 07/MAR/2017,08/MAY/2018,22/MAY/2018, ON DAY1 AND 15 THEN EVERY 6 MONTHS
     Route: 042
  2. RITUXAN [Suspect]
     Active Substance: RITUXIMAB
     Indication: Demyelination
     Route: 042
     Dates: start: 201406
  3. RITUXAN [Suspect]
     Active Substance: RITUXIMAB
     Indication: Neuromyelitis optica spectrum disorder
  4. TOPROL XL [Concomitant]
     Active Substance: METOPROLOL SUCCINATE
  5. AMBIEN [Concomitant]
     Active Substance: ZOLPIDEM TARTRATE
     Dosage: TAKE 1 TABLET AT BEDTIME AS NEEDED
     Route: 048
     Dates: start: 20210714, end: 20211230
  6. PROTONIX [Concomitant]
     Active Substance: PANTOPRAZOLE SODIUM
  7. AVONEX [Concomitant]
     Active Substance: INTERFERON BETA-1A
  8. TYSABRI [Concomitant]
     Active Substance: NATALIZUMAB
  9. VAGIFEM [Concomitant]
     Active Substance: ESTRADIOL
  10. FLAGYL [Concomitant]
     Active Substance: METRONIDAZOLE\METRONIDAZOLE HYDROCHLORIDE
  11. DIFLUCAN [Concomitant]
     Active Substance: FLUCONAZOLE
  12. PERCOCET [Concomitant]
     Active Substance: ACETAMINOPHEN\OXYCODONE HYDROCHLORIDE
  13. TRAMADOL [Concomitant]
     Active Substance: TRAMADOL
  14. LYRICA [Concomitant]
     Active Substance: PREGABALIN
  15. FLEXERIL [Concomitant]
     Active Substance: CYCLOBENZAPRINE HYDROCHLORIDE
  16. ATIVAN [Concomitant]
     Active Substance: LORAZEPAM
     Route: 048
     Dates: start: 20210714, end: 20211008
  17. ASTELIN [Concomitant]
     Active Substance: AZELASTINE HYDROCHLORIDE
  18. CEFTIN [Concomitant]
     Active Substance: CEFUROXIME AXETIL
  19. PYRIDIUM [Concomitant]
     Active Substance: PHENAZOPYRIDINE
  20. PHENERGAN [Concomitant]
     Active Substance: PROMETHAZINE HYDROCHLORIDE

REACTIONS (9)
  - Off label use [Unknown]
  - Vaginal infection [Unknown]
  - Depression [Unknown]
  - Cough [Unknown]
  - Urinary tract infection [Unknown]
  - Blood oestrogen decreased [Unknown]
  - Headache [Unknown]
  - Cystitis [Unknown]
  - Fungal infection [Unknown]
